FAERS Safety Report 23118846 (Version 3)
Quarter: 2023Q4

REPORT INFORMATION
  Report Type: Spontaneous
  Country: US (occurrence: US)
  Receive Date: 20231028
  Receipt Date: 20231111
  Transmission Date: 20240110
  Serious: Yes (Hospitalization)
  Sender: FDA-Public Use
  Company Number: US-STRIDES ARCOLAB LIMITED-2023SP016084

PATIENT
  Age: 70 Year
  Sex: Female

DRUGS (6)
  1. MORPHINE SULFATE [Suspect]
     Active Substance: MORPHINE SULFATE
     Indication: Pain
     Dosage: UNK
     Route: 065
  2. MORPHINE SULFATE [Suspect]
     Active Substance: MORPHINE SULFATE
     Dosage: 4 MILLIGRAM
     Route: 065
  3. BACTRIM [Suspect]
     Active Substance: SULFAMETHOXAZOLE\TRIMETHOPRIM
     Indication: Prophylaxis urinary tract infection
     Dosage: 0.5 DOSAGE FORM EVERY DAY
     Route: 048
  4. BACTRIM [Suspect]
     Active Substance: SULFAMETHOXAZOLE\TRIMETHOPRIM
     Dosage: 2 DOSAGE FORM (ON THE DAY PRIOR PRESENTATION TO THE EMERGENCY DEPARTMENT)
     Route: 048
  5. BACTRIM [Suspect]
     Active Substance: SULFAMETHOXAZOLE\TRIMETHOPRIM
     Dosage: 2 DOSAGE FORM (ON THE DAY OF PRESENTATION)
     Route: 048
  6. PYRIDIUM [Suspect]
     Active Substance: PHENAZOPYRIDINE
     Indication: Pain
     Dosage: UNK
     Route: 048

REACTIONS (3)
  - Methaemoglobinaemia [Recovered/Resolved]
  - Hypoxia [Recovered/Resolved]
  - Overdose [Unknown]
